FAERS Safety Report 7979073-5 (Version None)
Quarter: 2011Q4

REPORT INFORMATION
  Report Type: 
  Country: None (occurrence: None)
  Receive Date: 20111214
  Receipt Date: 20111208
  Transmission Date: 20120403
  Serious: No
  Sender: FDA-Public Use
  Company Number: US-PFIZER INC-2011300957

PATIENT
  Sex: Male
  Weight: 79 kg

DRUGS (2)
  1. LIPITOR [Suspect]
     Indication: BLOOD CHOLESTEROL INCREASED
     Dosage: 10 MG, DAILY
     Route: 048
     Dates: start: 20070101
  2. VALSARTAN [Suspect]
     Indication: HYPERTENSION
     Dosage: UNK,DAILY
     Route: 048

REACTIONS (1)
  - DIZZINESS [None]
